FAERS Safety Report 9834484 (Version 2)
Quarter: 2014Q1

REPORT INFORMATION
  Report Type: Spontaneous
  Country: GB (occurrence: GB)
  Receive Date: 20140122
  Receipt Date: 20140204
  Transmission Date: 20141002
  Serious: Yes (Hospitalization)
  Sender: FDA-Public Use
  Company Number: GB-SA-2014SA005411

PATIENT
  Age: 56 Year
  Sex: Male

DRUGS (2)
  1. LANTUS [Suspect]
     Indication: DIABETES MELLITUS
     Dosage: DOSE:140 UNIT(S)
     Route: 058
     Dates: start: 20140112
  2. NOVORAPID [Suspect]
     Indication: DIABETES MELLITUS
     Dosage: DOSE:500 UNIT(S)
     Route: 058
     Dates: start: 20140112

REACTIONS (2)
  - Alanine aminotransferase increased [Unknown]
  - Intentional overdose [Unknown]
